FAERS Safety Report 6614925-X (Version None)
Quarter: 2010Q1

REPORT INFORMATION
  Report Type: 
  Country: None (occurrence: None)
  Receive Date: 20100305
  Receipt Date: 20100224
  Transmission Date: 20100710
  Serious: Yes (Other)
  Sender: FDA-Public Use
  Company Number: GB-SP-2010-01281

PATIENT
  Sex: Male

DRUGS (1)
  1. IMMUCYST [Suspect]
     Indication: BLADDER CANCER
     Route: 043
     Dates: start: 20060101, end: 20060101

REACTIONS (3)
  - MYCOBACTERIAL INFECTION [None]
  - ORCHIDECTOMY [None]
  - TESTICULAR PAIN [None]
